FAERS Safety Report 10394938 (Version 1)
Quarter: 2014Q3

REPORT INFORMATION
  Report Type: Report from Study
  Country: US (occurrence: US)
  Receive Date: 20140820
  Receipt Date: 20140820
  Transmission Date: 20150326
  Serious: Yes (Other)
  Sender: FDA-Public Use
  Company Number: US-ROCHE-1452040

PATIENT
  Age: 42 Year
  Sex: Male

DRUGS (2)
  1. RITUXAN [Suspect]
     Active Substance: RITUXIMAB
     Indication: GRANULOMATOSIS WITH POLYANGIITIS
     Dosage: MAINTENANCE THERAPY
     Route: 065
  2. RITUXAN [Suspect]
     Active Substance: RITUXIMAB
     Indication: MICROSCOPIC POLYANGIITIS

REACTIONS (5)
  - Glomerulonephritis [Unknown]
  - Haematuria [Unknown]
  - Proteinuria [Unknown]
  - Nephrosclerosis [Unknown]
  - Blood creatinine increased [Unknown]
